FAERS Safety Report 15902494 (Version 3)
Quarter: 2019Q1

REPORT INFORMATION
  Report Type: Spontaneous
  Country: CZ (occurrence: CZ)
  Receive Date: 20190201
  Receipt Date: 20190214
  Transmission Date: 20190417
  Serious: Yes (Other)
  Sender: FDA-Public Use
  Company Number: PHHY2019CZ019623

PATIENT
  Age: 62 Year
  Sex: Male

DRUGS (10)
  1. METHYLPREDNISOLONE. [Suspect]
     Active Substance: METHYLPREDNISOLONE
     Indication: CHRONIC LYMPHOCYTIC LEUKAEMIA
     Dosage: UNK
     Route: 065
  2. CISPLATINE [Suspect]
     Active Substance: CISPLATIN
     Indication: CHRONIC LYMPHOCYTIC LEUKAEMIA
     Dosage: 6 CYCLES
     Route: 065
  3. RITUXIMAB. [Suspect]
     Active Substance: RITUXIMAB
     Indication: CHRONIC LYMPHOCYTIC LEUKAEMIA
     Dosage: 3 CYCLES
     Route: 065
  4. CISPLATINE [Suspect]
     Active Substance: CISPLATIN
     Dosage: 1 UNK, CYCLIC
     Route: 042
  5. RITUXIMAB. [Suspect]
     Active Substance: RITUXIMAB
     Dosage: 6 CYCLES
     Route: 065
  6. FLUDARABINE [Suspect]
     Active Substance: FLUDARABINE PHOSPHATE
     Dosage: UNK
     Route: 042
  7. ETOPOSIDE. [Suspect]
     Active Substance: ETOPOSIDE
     Indication: CHRONIC LYMPHOCYTIC LEUKAEMIA
     Route: 065
  8. CYTOSINE ARABINOSIDE [Suspect]
     Active Substance: CYTARABINE
     Indication: CHRONIC LYMPHOCYTIC LEUKAEMIA
     Route: 065
  9. FLUDARABINE [Suspect]
     Active Substance: FLUDARABINE PHOSPHATE
     Indication: CHRONIC LYMPHOCYTIC LEUKAEMIA
     Dosage: 3 CYCLES
     Route: 065
  10. CYCLOPHOSPHAMIDE. [Suspect]
     Active Substance: CYCLOPHOSPHAMIDE
     Indication: CHRONIC LYMPHOCYTIC LEUKAEMIA
     Dosage: 3 CYCLES
     Route: 065

REACTIONS (3)
  - Drug ineffective [Unknown]
  - Clostridium colitis [Recovered/Resolved]
  - Febrile neutropenia [Recovered/Resolved]

NARRATIVE: CASE EVENT DATE: 2013
